FAERS Safety Report 14024042 (Version 1)
Quarter: 2017Q3

REPORT INFORMATION
  Report Type: Spontaneous
  Country: AU (occurrence: AU)
  Receive Date: 20170929
  Receipt Date: 20170929
  Transmission Date: 20171128
  Serious: Yes (Other)
  Sender: FDA-Public Use
  Company Number: AU-MYLANLABS-2017M1059342

PATIENT
  Age: 58 Year
  Sex: Female

DRUGS (1)
  1. PAXTINE [Suspect]
     Active Substance: PAROXETINE
     Indication: PRODUCT USED FOR UNKNOWN INDICATION
     Dosage: HALF A TABLET EACH MORNING

REACTIONS (4)
  - Feeling abnormal [Recovering/Resolving]
  - Dizziness [Recovering/Resolving]
  - Head discomfort [Recovering/Resolving]
  - Hypersensitivity [Recovering/Resolving]
